FAERS Safety Report 6516986-5 (Version None)
Quarter: 2009Q4

REPORT INFORMATION
  Report Type: 
  Country: None (occurrence: None)
  Receive Date: 20091223
  Receipt Date: 20091221
  Transmission Date: 20100525
  Serious: Yes (Other)
  Sender: FDA-Public Use
  Company Number: NL-WYE-G05200309

PATIENT
  Age: 34 Year
  Sex: Female

DRUGS (3)
  1. EFFEXOR XR [Suspect]
     Dosage: 150 MG
  2. RITALIN [Concomitant]
  3. CONCERTA [Concomitant]

REACTIONS (4)
  - BLOOD FOLLICLE STIMULATING HORMONE INCREASED [None]
  - BLOOD LUTEINISING HORMONE INCREASED [None]
  - MENSTRUATION DELAYED [None]
  - PREMATURE MENOPAUSE [None]
